FAERS Safety Report 14948451 (Version 1)
Quarter: 2018Q2

REPORT INFORMATION
  Report Type: Report from Study
  Country: CA (occurrence: CA)
  Receive Date: 20180529
  Receipt Date: 20180529
  Transmission Date: 20180711
  Serious: Yes (Hospitalization)
  Sender: FDA-Public Use
  Company Number: CA-JNJFOC-20180531154

PATIENT
  Age: 12 Year
  Sex: Female
  Weight: 27 kg

DRUGS (4)
  1. REMICADE [Suspect]
     Active Substance: INFLIXIMAB
     Indication: CROHN^S DISEASE
     Dosage: RECEIVED 6TH DOSE ON 22-MAY-2018
     Route: 042
     Dates: start: 20171117
  2. RIFABUTIN. [Concomitant]
     Active Substance: RIFABUTIN
     Indication: ANTIBIOTIC THERAPY
     Route: 065
  3. CLARITHROMYCINE [Concomitant]
     Active Substance: CLARITHROMYCIN
     Indication: ANTIBIOTIC THERAPY
     Route: 065
  4. CLOFAZIMINA [Concomitant]
     Indication: ANTIBIOTIC THERAPY
     Route: 065

REACTIONS (5)
  - Abdominal pain [Not Recovered/Not Resolved]
  - Product use issue [Unknown]
  - Intestinal scarring [Recovering/Resolving]
  - Off label use [Unknown]
  - Intestinal obstruction [Recovering/Resolving]

NARRATIVE: CASE EVENT DATE: 201711
